FAERS Safety Report 22257068 (Version 1)
Quarter: 2023Q2

REPORT INFORMATION
  Report Type: Spontaneous
  Country: AR (occurrence: AR)
  Receive Date: 20230427
  Receipt Date: 20230427
  Transmission Date: 20230722
  Serious: Yes (Other)
  Sender: FDA-Public Use
  Company Number: AR-AMGEN-ARGSP2023043569

PATIENT
  Sex: Female

DRUGS (2)
  1. NPLATE [Suspect]
     Active Substance: ROMIPLOSTIM
     Indication: Immune thrombocytopenia
     Dosage: 1 MCG/KG, QWK
     Route: 065
     Dates: start: 202212, end: 202302
  2. NPLATE [Suspect]
     Active Substance: ROMIPLOSTIM
     Dosage: 1 MICROGRAM, QD
     Route: 065
     Dates: start: 2023

REACTIONS (2)
  - Thrombocytopenia [Unknown]
  - Arthritis [Recovered/Resolved]

NARRATIVE: CASE EVENT DATE: 20230101
